FAERS Safety Report 5718348-7 (Version None)
Quarter: 2008Q2

REPORT INFORMATION
  Report Type: 
  Country: None (occurrence: None)
  Receive Date: 20080425
  Receipt Date: 20070406
  Transmission Date: 20081010
  Serious: No
  Sender: FDA-Public Use
  Company Number: A0646197A

PATIENT
  Age: 13 Year
  Sex: Male

DRUGS (1)
  1. DEXEDRINE [Suspect]
     Indication: ATTENTION DEFICIT/HYPERACTIVITY DISORDER
     Dosage: 10MG PER DAY
     Route: 048

REACTIONS (1)
  - POLLAKIURIA [None]
